FAERS Safety Report 4752549-X (Version None)
Quarter: 2005Q3

REPORT INFORMATION
  Report Type: 
  Country: None (occurrence: None)
  Receive Date: 20050823
  Receipt Date: 20050808
  Transmission Date: 20060218
  Serious: Yes (Other)
  Sender: FDA-Public Use
  Company Number: 12062

PATIENT

DRUGS (3)
  1. CYTARABINE [Suspect]
     Indication: MYELODYSPLASTIC SYNDROME
     Dosage: 1000 MG/M2 PER_CYCLE IV
     Route: 042
  2. IDARUBICIN HCL [Suspect]
     Indication: MYELODYSPLASTIC SYNDROME
     Dosage: 18 MG/M2 PER_CYCLE IV
     Route: 042
  3. GM-CSF [Suspect]
     Indication: MYELODYSPLASTIC SYNDROME
     Dosage: 3 MCG/KG SC
     Route: 058

REACTIONS (1)
  - DRUG RESISTANCE [None]
